FAERS Safety Report 14568878 (Version 3)
Quarter: 2018Q1

REPORT INFORMATION
  Report Type: Report from Study
  Country: JP (occurrence: JP)
  Receive Date: 20180223
  Receipt Date: 20180306
  Transmission Date: 20180509
  Serious: Yes (Life-Threatening, Hospitalization, Other)
  Sender: FDA-Public Use
  Company Number: JP-PFIZER INC-2018065362

PATIENT
  Age: 63 Year
  Sex: Male

DRUGS (4)
  1. PROCARBAZINE [Suspect]
     Active Substance: PROCARBAZINE
     Indication: CENTRAL NERVOUS SYSTEM LYMPHOMA
     Dosage: 100 MG/M2, DAY 1-7 (ODD CYCLES) (2 COURSES)
     Route: 048
  2. VINCRISTINE [Suspect]
     Active Substance: VINCRISTINE
     Indication: CENTRAL NERVOUS SYSTEM LYMPHOMA
     Dosage: 1.4 MG/M2 ON DAY 2 (2 COURSES)
     Route: 042
  3. METHOTREXATE SODIUM. [Suspect]
     Active Substance: METHOTREXATE SODIUM
     Indication: CENTRAL NERVOUS SYSTEM LYMPHOMA
     Dosage: 3.5 G/M2/2H ON DAY2 (2 COURSES)
     Route: 042
  4. RITUXIMAB. [Suspect]
     Active Substance: RITUXIMAB
     Indication: CENTRAL NERVOUS SYSTEM LYMPHOMA
     Dosage: 375 MG/M2, CYCLIC (DAY 1) (2 COURSES)
     Route: 042

REACTIONS (4)
  - Dyspnoea [Unknown]
  - Toxicity to various agents [Unknown]
  - Small intestinal haemorrhage [Recovered/Resolved]
  - Anaemia [Unknown]
